FAERS Safety Report 4597987-3 (Version None)
Quarter: 2005Q1

REPORT INFORMATION
  Report Type: 
  Country: None (occurrence: None)
  Receive Date: 20050209
  Receipt Date: 20041001
  Transmission Date: 20050727
  Serious: Yes (Death)
  Sender: FDA-Public Use
  Company Number: CEL-2004-01849-ROC(0)

PATIENT
  Age: 16 Year
  Sex: Male

DRUGS (1)
  1. TUSSIONEX [Suspect]

REACTIONS (2)
  - DEATH [None]
  - OVERDOSE [None]
